FAERS Safety Report 9101175 (Version 1)
Quarter: 2013Q1

REPORT INFORMATION
  Report Type: Spontaneous
  Country: US (occurrence: US)
  Receive Date: 20130215
  Receipt Date: 20130215
  Transmission Date: 20140127
  Serious: Yes (Other)
  Sender: FDA-Public Use
  Company Number: US-UCBSA-078121

PATIENT
  Sex: 0

DRUGS (1)
  1. KEPPRA [Suspect]
     Indication: TEMPORAL LOBE EPILEPSY

REACTIONS (2)
  - Abnormal behaviour [Unknown]
  - Altered state of consciousness [Unknown]
